FAERS Safety Report 7961012-4 (Version None)
Quarter: 2011Q4

REPORT INFORMATION
  Report Type: 
  Country: None (occurrence: None)
  Receive Date: 20111207
  Receipt Date: 20111206
  Transmission Date: 20120403
  Serious: No
  Sender: FDA-Public Use
  Company Number: US-PFIZER INC-2011297931

PATIENT
  Sex: Male
  Weight: 97.506 kg

DRUGS (1)
  1. LYRICA [Suspect]
     Indication: NEURALGIA
     Dosage: UNK, 1X/DAY
     Route: 048
     Dates: start: 20090101

REACTIONS (2)
  - NAUSEA [None]
  - ERUCTATION [None]
